FAERS Safety Report 9281098 (Version 1)
Quarter: 2013Q2

REPORT INFORMATION
  Report Type: Spontaneous
  Country: US (occurrence: US)
  Receive Date: 20130509
  Receipt Date: 20130509
  Transmission Date: 20140414
  Serious: No
  Sender: FDA-Public Use
  Company Number: US-ROXANE LABORATORIES, INC.-2013-RO-00738RO

PATIENT
  Age: 54 Year
  Sex: Female

DRUGS (2)
  1. MERCAPTOPURINE [Suspect]
     Indication: INFLAMMATORY BOWEL DISEASE
     Dosage: 50 MG
     Route: 048
     Dates: start: 20120615, end: 20130209
  2. LIALDA [Concomitant]
     Indication: INFLAMMATORY BOWEL DISEASE

REACTIONS (1)
  - Arthralgia [Recovered/Resolved]
